FAERS Safety Report 20035163 (Version 2)
Quarter: 2022Q1

REPORT INFORMATION
  Report Type: Report from Study
  Country: US (occurrence: US)
  Receive Date: 20211104
  Receipt Date: 20220105
  Transmission Date: 20220423
  Serious: Yes (Death, Other)
  Sender: FDA-Public Use
  Company Number: US-TAKEDA-2021TUS068561

PATIENT
  Sex: Male

DRUGS (2)
  1. VORTIOXETINE [Suspect]
     Active Substance: VORTIOXETINE
     Indication: Depression
     Dosage: 10 MILLIGRAM, QD
     Route: 048
     Dates: start: 20180212, end: 20210303
  2. VORTIOXETINE [Suspect]
     Active Substance: VORTIOXETINE
     Dosage: 10 MILLIGRAM, BID
     Route: 065
     Dates: start: 20201020

REACTIONS (1)
  - Death [Fatal]
